FAERS Safety Report 4277016-1 (Version None)
Quarter: 2004Q1

REPORT INFORMATION
  Report Type: 
  Country: None (occurrence: None)
  Receive Date: 20040120
  Receipt Date: 20040120
  Transmission Date: 20041129
  Serious: Yes (Other)
  Sender: FDA-Public Use
  Company Number: None

PATIENT
  Sex: Male
  Weight: 80.7403 kg

DRUGS (5)
  1. ATAZANAVIR 150 MG CAPSULES-BMS [Suspect]
     Indication: HIV INFECTION
     Dosage: 300 MG PO QD
     Route: 048
     Dates: start: 20030917
  2. TRIZIVIR [Concomitant]
  3. TRICOR [Concomitant]
  4. LIPITOR [Concomitant]
  5. ZYRTEC [Concomitant]

REACTIONS (1)
  - BLOOD BILIRUBIN INCREASED [None]
